FAERS Safety Report 20332501 (Version 29)
Quarter: 2022Q3

REPORT INFORMATION
  Report Type: Report from Study
  Country: CL (occurrence: None)
  Receive Date: 20220113
  Receipt Date: 20220927
  Transmission Date: 20221027
  Serious: Yes (Hospitalization)
  Sender: FDA-Public Use
  Company Number: CL-Eisai Medical Research-EC-2022-106616

PATIENT
  Age: 50 Year
  Sex: Female
  Weight: 54 kg

DRUGS (15)
  1. LENVATINIB [Suspect]
     Active Substance: LENVATINIB
     Indication: Clear cell renal cell carcinoma
     Route: 048
     Dates: start: 20210702, end: 20211216
  2. LENVATINIB [Suspect]
     Active Substance: LENVATINIB
     Dosage: STARTING DOSE AT 14 MG, FLUCTUATED DOSAGE
     Route: 048
     Dates: start: 20220328, end: 20220602
  3. PEMBROLIZUMAB [Suspect]
     Active Substance: PEMBROLIZUMAB
     Indication: Clear cell renal cell carcinoma
     Route: 041
     Dates: start: 20210702, end: 20211105
  4. BELZUTIFAN [Suspect]
     Active Substance: BELZUTIFAN
     Indication: Clear cell renal cell carcinoma
     Dosage: STARTING DOSE AT 120 MG, FLUCTUATED DOSAGE
     Route: 048
     Dates: start: 20210702, end: 20211226
  5. POLYETHYLENE GLYCOL 3350 [Concomitant]
     Active Substance: POLYETHYLENE GLYCOL 3350
     Dates: start: 20210422, end: 20220106
  6. OMEPRAZOLE [Concomitant]
     Active Substance: OMEPRAZOLE
     Dates: start: 20210709, end: 20220106
  7. ACETAMINOPHEN [Concomitant]
     Active Substance: ACETAMINOPHEN
     Dates: start: 20210709, end: 20220106
  8. BUPRENORPHINE [Concomitant]
     Active Substance: BUPRENORPHINE
     Dates: start: 20210709, end: 20220222
  9. DIPYRONE [Concomitant]
     Active Substance: DIPYRONE
     Dates: start: 20210725, end: 20220106
  10. CELECOXIB [Concomitant]
     Active Substance: CELECOXIB
     Dates: start: 20210725, end: 20220106
  11. LOSARTAN [Concomitant]
     Active Substance: LOSARTAN
     Dates: start: 20211013, end: 20220106
  12. CARVEDILOL [Concomitant]
     Active Substance: CARVEDILOL
     Dates: start: 20211106, end: 20220106
  13. DOMPERIDONE [Concomitant]
     Active Substance: DOMPERIDONE
     Dates: start: 20211222, end: 20220106
  14. PREDNISONE [Concomitant]
     Active Substance: PREDNISONE
     Dates: start: 20211227, end: 20220106
  15. ONDANSETRON [Concomitant]
     Active Substance: ONDANSETRON
     Dates: start: 20210810, end: 20220106

REACTIONS (1)
  - Hypertransaminasaemia [Recovered/Resolved]

NARRATIVE: CASE EVENT DATE: 20220106
